FAERS Safety Report 12168560 (Version 5)
Quarter: 2016Q4

REPORT INFORMATION
  Report Type: Report from Study
  Country: US (occurrence: US)
  Receive Date: 20160310
  Receipt Date: 20161116
  Transmission Date: 20170207
  Serious: Yes (Other)
  Sender: FDA-Public Use
  Company Number: US-GILEAD-2016-0202561

PATIENT
  Age: 60 Year
  Sex: Female

DRUGS (3)
  1. ADCIRCA [Concomitant]
     Active Substance: TADALAFIL
  2. POTASSIUM [Suspect]
     Active Substance: POTASSIUM
     Indication: PRODUCT USED FOR UNKNOWN INDICATION
     Route: 065
  3. AMBRISENTAN [Suspect]
     Active Substance: AMBRISENTAN
     Indication: PRODUCT USED FOR UNKNOWN INDICATION
     Dosage: 5 MG, QD
     Route: 065
     Dates: start: 20120410

REACTIONS (11)
  - Cardiac failure [Unknown]
  - Syncope [Unknown]
  - Arthralgia [Unknown]
  - Fluid retention [Unknown]
  - Oxygen consumption increased [Unknown]
  - Panic reaction [Unknown]
  - Dyspnoea [Not Recovered/Not Resolved]
  - Pericardial effusion [Unknown]
  - Oxygen saturation decreased [Unknown]
  - Drug dose omission [Unknown]
  - Oedema peripheral [Recovered/Resolved]

NARRATIVE: CASE EVENT DATE: 20160303
